FAERS Safety Report 16252520 (Version 1)
Quarter: 2019Q2

REPORT INFORMATION
  Report Type: Spontaneous
  Country: SE (occurrence: SE)
  Receive Date: 20190429
  Receipt Date: 20190429
  Transmission Date: 20190711
  Serious: Yes (Hospitalization)
  Sender: FDA-Public Use
  Company Number: SE-009507513-1904SWE009868

PATIENT
  Age: 34 Year
  Sex: Male

DRUGS (6)
  1. LORATADINE. [Suspect]
     Active Substance: LORATADINE
     Dates: start: 20160915, end: 20160915
  2. TETRACYCLINE [Suspect]
     Active Substance: TETRACYCLINE
     Dates: start: 20160915, end: 20160915
  3. FINASTERIDE. [Suspect]
     Active Substance: FINASTERIDE
     Dates: start: 20160915, end: 20160915
  4. TRAMADOL HYDROCHLORIDE. [Suspect]
     Active Substance: TRAMADOL HYDROCHLORIDE
     Dates: start: 20160915, end: 20160915
  5. ALPRAZOLAM. [Suspect]
     Active Substance: ALPRAZOLAM
     Dates: start: 20160915, end: 20160915
  6. CETIRIZINE HYDROCHLORIDE. [Suspect]
     Active Substance: CETIRIZINE HYDROCHLORIDE
     Dates: start: 20160915, end: 20160915

REACTIONS (3)
  - Toxicity to various agents [Recovered/Resolved]
  - Suicidal ideation [Recovered/Resolved]
  - Depressed level of consciousness [Recovered/Resolved]

NARRATIVE: CASE EVENT DATE: 20160915
